FAERS Safety Report 12380239 (Version 1)
Quarter: 2016Q2

REPORT INFORMATION
  Report Type: Spontaneous
  Country: US (occurrence: None)
  Receive Date: 20160517
  Receipt Date: 20160517
  Transmission Date: 20160815
  Serious: Yes (Hospitalization, Other)
  Sender: FDA-Public Use
  Company Number: None

PATIENT
  Age: 70 Year
  Sex: Male
  Weight: 74.84 kg

DRUGS (1)
  1. HARVONI [Suspect]
     Active Substance: LEDIPASVIR\SOFOSBUVIR
     Indication: HEPATITIS C
     Dosage: IN THE MORNING TAKEN BY MOUTH
     Route: 048
     Dates: start: 20151205, end: 20160305

REACTIONS (2)
  - Osteomyelitis [None]
  - Angiopathy [None]

NARRATIVE: CASE EVENT DATE: 20160214
